FAERS Safety Report 9190993 (Version 3)
Quarter: 2013Q2

REPORT INFORMATION
  Report Type: Spontaneous
  Country: US (occurrence: US)
  Receive Date: 20130326
  Receipt Date: 20130405
  Transmission Date: 20140414
  Serious: Yes (Other)
  Sender: FDA-Public Use
  Company Number: US-PFIZER INC-2013096302

PATIENT
  Age: 70 Year
  Sex: Female
  Weight: 72.56 kg

DRUGS (12)
  1. LYRICA [Suspect]
     Indication: FIBROMYALGIA
     Dosage: 100 MG, 2X/DAY
     Route: 048
     Dates: end: 201301
  2. CLONAZEPAM [Concomitant]
     Dosage: 2 MG, 1X/DAY
     Route: 048
  3. CLONAZEPAM [Concomitant]
     Dosage: UNK, 1X/DAY
  4. CYMBALTA [Concomitant]
     Dosage: 60 MG, 1X/DAY
     Route: 048
  5. ASPIRIN [Concomitant]
     Dosage: 81 MG, 1X/DAY
     Route: 048
  6. MECLIZINE [Concomitant]
     Dosage: 25 MG, 3X/DAY AS NEEDED
     Route: 048
  7. MECLIZINE [Concomitant]
     Dosage: UNK
  8. ACETAMINOPHEN W/OXYCODONE [Concomitant]
     Dosage: OXYCODONE10MG-ACETAMINOPHEN325MG EVERY 6 HOURS AS NEEDED
     Route: 048
  9. ZANTAC [Concomitant]
     Dosage: 150 MG, 2X/DAY
     Route: 048
  10. OXYCODONE [Concomitant]
     Dosage: UNK
  11. VITAMIN B12 [Concomitant]
     Dosage: UNK
  12. EFFEXOR [Concomitant]
     Dosage: UNK

REACTIONS (5)
  - Neoplasm malignant [Unknown]
  - Discomfort [Unknown]
  - Vertigo [Unknown]
  - Gait disturbance [Unknown]
  - Pain [Not Recovered/Not Resolved]
